FAERS Safety Report 8518447-0 (Version None)
Quarter: 2012Q3

REPORT INFORMATION
  Report Type: 
  Country: None (occurrence: None)
  Receive Date: 20120718
  Receipt Date: 20120327
  Transmission Date: 20120928
  Serious: No
  Sender: FDA-Public Use
  Company Number: US-BRISTOL-MYERS SQUIBB COMPANY-16447179

PATIENT
  Sex: Female

DRUGS (2)
  1. WARFARIN SODIUM [Suspect]
  2. COUMADIN [Suspect]
     Indication: FACTOR V LEIDEN MUTATION
     Dosage: 7.5MG ONCE DAILY DOSE:5MG AND 10MG

REACTIONS (6)
  - ARTHRALGIA [None]
  - ALOPECIA [None]
  - TINNITUS [None]
  - RHINORRHOEA [None]
  - NECK PAIN [None]
  - DRY SKIN [None]
